FAERS Safety Report 10047366 (Version 1)
Quarter: 2014Q1

REPORT INFORMATION
  Report Type: Spontaneous
  Country: US (occurrence: US)
  Receive Date: 20140331
  Receipt Date: 20140331
  Transmission Date: 20141002
  Serious: No
  Sender: FDA-Public Use
  Company Number: US-JNJFOC-20140312627

PATIENT
  Age: 51 Year
  Sex: Male
  Weight: 122.47 kg

DRUGS (1)
  1. SANDOZ FENTANYL TRANSDERMAL SYSTEM [Suspect]
     Indication: PAIN
     Route: 062
     Dates: start: 201402

REACTIONS (2)
  - Product adhesion issue [Unknown]
  - Wrong technique in drug usage process [Unknown]
